FAERS Safety Report 14746980 (Version 1)
Quarter: 2018Q2

REPORT INFORMATION
  Report Type: Spontaneous
  Country: SE (occurrence: SE)
  Receive Date: 20180411
  Receipt Date: 20180411
  Transmission Date: 20180711
  Serious: Yes (Other)
  Sender: FDA-Public Use
  Company Number: SE-MYLANLABS-2018M1022402

PATIENT
  Age: 23 Year
  Sex: Female

DRUGS (5)
  1. PRONAXEN [Suspect]
     Active Substance: NAPROXEN
     Indication: DEPRESSED MOOD
     Dosage: UNK
  2. VENLAFAXINE [Suspect]
     Active Substance: VENLAFAXINE HYDROCHLORIDE
     Indication: DEPRESSED MOOD
  3. PANOCOD [Suspect]
     Active Substance: ACETAMINOPHEN\CODEINE PHOSPHATE
     Indication: DEPRESSED MOOD
     Dosage: 7 DF, UNK
  4. LERGIGAN (PROMETHAZINE HYDROCHLORIDE) [Suspect]
     Active Substance: PROMETHAZINE HYDROCHLORIDE
     Indication: DEPRESSED MOOD
     Dosage: 250 MG, UNK
  5. PANODIL [Suspect]
     Active Substance: ACETAMINOPHEN
     Indication: DEPRESSED MOOD
     Dosage: UNK

REACTIONS (3)
  - Abdominal pain upper [Unknown]
  - Intentional self-injury [Unknown]
  - Toxicity to various agents [Unknown]

NARRATIVE: CASE EVENT DATE: 20180204
